FAERS Safety Report 8248250-0 (Version None)
Quarter: 2012Q1

REPORT INFORMATION
  Report Type: 
  Country: None (occurrence: None)
  Receive Date: 20120330
  Receipt Date: 20120326
  Transmission Date: 20120608
  Serious: Yes (Death)
  Sender: FDA-Public Use
  Company Number: FR-ASTRAZENECA-2012SE20237

PATIENT
  Age: 61 Year
  Sex: Male

DRUGS (12)
  1. ATACAND [Suspect]
     Route: 048
     Dates: start: 20090113
  2. VASTAREL [Suspect]
     Route: 048
     Dates: start: 20110527
  3. ATARAX [Suspect]
     Route: 048
     Dates: start: 20101220
  4. IMOVANE [Suspect]
     Route: 048
     Dates: start: 20041027
  5. ATACAND [Suspect]
     Route: 048
     Dates: start: 20090102, end: 20090112
  6. HALDOL [Suspect]
     Dosage: 2 MG/ML
     Route: 048
     Dates: start: 20041027, end: 20090716
  7. TRIMEPRAZINE TARTRATE [Suspect]
     Route: 048
     Dates: start: 20081220
  8. RISPERIDONE [Suspect]
     Indication: SCHIZOPHRENIA, PARANOID TYPE
     Route: 050
     Dates: start: 20100708, end: 20110722
  9. SERC [Suspect]
     Route: 048
     Dates: start: 20110527
  10. AMLODIPINE BESYLATE [Suspect]
     Route: 048
     Dates: start: 20081230
  11. ESIDRIX [Suspect]
     Route: 048
     Dates: start: 20090113
  12. LOXAPINE HCL [Suspect]
     Route: 048
     Dates: start: 20081220

REACTIONS (2)
  - CARDIAC ARREST [None]
  - ELECTROCARDIOGRAM QT PROLONGED [None]
